FAERS Safety Report 9386701 (Version 2)
Quarter: 2013Q3

REPORT INFORMATION
  Report Type: Spontaneous
  Country: FR (occurrence: None)
  Receive Date: 20130702
  Receipt Date: 20130821
  Transmission Date: 20140515
  Serious: Yes (Hospitalization)
  Sender: FDA-Public Use
  Company Number: DSM-2013-00588

PATIENT
  Age: 77 Year
  Sex: Male

DRUGS (6)
  1. ALTEIS DUO [Suspect]
     Indication: HYPERTENSION
     Route: 048
     Dates: start: 201211, end: 20130531
  2. EBIXA [Suspect]
     Indication: DEMENTIA ALZHEIMER^S TYPE
     Dosage: 20 MG (10 MG, 2 IN 1 D), ORAL
     Route: 048
     Dates: start: 201203
  3. EXELON [Suspect]
     Indication: DEMENTIA ALZHEIMER^S TYPE
     Route: 062
     Dates: start: 20130530, end: 20130531
  4. MIANSERINE [Suspect]
     Indication: PRODUCT USED FOR UNKNOWN INDICATION
     Route: 048
     Dates: start: 20130529, end: 20130531
  5. KARDEGIC [Suspect]
     Indication: PRODUCT USED FOR UNKNOWN INDICATION
     Route: 048
  6. CRESTOR [Suspect]
     Indication: PRODUCT USED FOR UNKNOWN INDICATION
     Route: 048
     Dates: end: 20130601

REACTIONS (7)
  - Sinus bradycardia [None]
  - Unresponsive to stimuli [None]
  - Malaise [None]
  - Cerebral atrophy [None]
  - Supraventricular extrasystoles [None]
  - Diastolic dysfunction [None]
  - Electrocardiogram P wave abnormal [None]
